FAERS Safety Report 23150831 (Version 1)
Quarter: 2023Q4

REPORT INFORMATION
  Report Type: Spontaneous
  Country: CN (occurrence: CN)
  Receive Date: 20231106
  Receipt Date: 20231106
  Transmission Date: 20240110
  Serious: Yes (Other)
  Sender: FDA-Public Use
  Company Number: CN-009507513-2311CHN001407

PATIENT
  Age: 41 Year
  Sex: Male
  Weight: 53 kg

DRUGS (6)
  1. KEYTRUDA [Suspect]
     Active Substance: PEMBROLIZUMAB
     Indication: Neoplasm
     Dosage: 200 MG,EVERY 3 WEEKS (Q3W) (ALE RPEORTED AS ONCE)
     Route: 041
     Dates: start: 20230601, end: 20230601
  2. KEYTRUDA [Suspect]
     Active Substance: PEMBROLIZUMAB
     Indication: Oesophageal carcinoma
     Dosage: 200 MG
     Dates: start: 20230703
  3. OXALIPLATIN [Suspect]
     Active Substance: OXALIPLATIN
     Indication: Neoplasm
     Dosage: 200 MG, EVERY 3 WEEKS (Q3W) (ALSO RPEORTED AS: ONCE)
     Route: 041
     Dates: start: 20230601, end: 20230601
  4. OXALIPLATIN [Suspect]
     Active Substance: OXALIPLATIN
     Indication: Oesophageal carcinoma
  5. GIMERACIL\OTERACIL\TEGAFUR [Suspect]
     Active Substance: GIMERACIL\OTERACIL POTASSIUM\TEGAFUR
     Indication: Neoplasm
     Dosage: 60 MG, BID FROM DAY 1 TO DAY 14, EVERY 3 WEEKS (Q3W)
     Route: 048
     Dates: start: 20230601, end: 20230614
  6. GIMERACIL\OTERACIL\TEGAFUR [Suspect]
     Active Substance: GIMERACIL\OTERACIL POTASSIUM\TEGAFUR
     Indication: Oesophageal carcinoma
     Dosage: 60 MG, BID FROM DAY 1 TO DAY 14
     Route: 048
     Dates: start: 20230703

REACTIONS (4)
  - Myelosuppression [Recovered/Resolved]
  - Product use issue [Unknown]
  - Inappropriate schedule of product administration [Unknown]
  - Product use issue [Unknown]

NARRATIVE: CASE EVENT DATE: 20230601
